FAERS Safety Report 5302809-9 (Version None)
Quarter: 2007Q1

REPORT INFORMATION
  Report Type: 
  Country: None (occurrence: None)
  Receive Date: 20070201
  Receipt Date: 20061127
  Transmission Date: 20070707
  Serious: No
  Sender: FDA-Public Use
  Company Number: 2006PV025939

PATIENT
  Age: 57 Year
  Sex: Female
  Weight: 88.4514 kg

DRUGS (6)
  1. BYETTA [Suspect]
     Indication: DIABETES MELLITUS NON-INSULIN-DEPENDENT
     Dosage: 5 MCG;BID;SC
     Route: 058
     Dates: start: 20060901
  2. METFORMIN HCL [Concomitant]
  3. LIPITOR [Concomitant]
  4. NYSTATIN [Concomitant]
  5. ALTACE [Concomitant]
  6. BLOOD PRESSURE PILL [Concomitant]

REACTIONS (2)
  - NASOPHARYNGEAL DISORDER [None]
  - THROAT IRRITATION [None]
